FAERS Safety Report 10881420 (Version 2)
Quarter: 2015Q1

REPORT INFORMATION
  Report Type: Spontaneous
  Country: GB (occurrence: GB)
  Receive Date: 20150303
  Receipt Date: 20150303
  Transmission Date: 20150721
  Serious: Yes (Other)
  Sender: FDA-Public Use
  Company Number: GB-JNJFOC-20150214032

PATIENT

DRUGS (1)
  1. HALOPERIDOL. [Suspect]
     Active Substance: HALOPERIDOL
     Indication: PRODUCT USED FOR UNKNOWN INDICATION
     Dosage: A MEAN TOTAL OF DOSE OF 22.1 MG (2.5-48 MG), THOSE WITH PRN DOSE OF 13.8 MG  (7.5- 30MG)
     Route: 065

REACTIONS (4)
  - Delirium [Unknown]
  - Sedation [Unknown]
  - Electrocardiogram QT prolonged [Unknown]
  - Drug ineffective [Unknown]
